FAERS Safety Report 5135442-2 (Version None)
Quarter: 2006Q4

REPORT INFORMATION
  Report Type: 
  Country: None (occurrence: None)
  Receive Date: 20061026
  Receipt Date: 20061020
  Transmission Date: 20070319
  Serious: Yes (Hospitalization)
  Sender: FDA-Public Use
  Company Number: JP-JPN-A200604449

PATIENT
  Age: 95 Year
  Sex: Female

DRUGS (4)
  1. VALTREX [Suspect]
     Indication: HERPES ZOSTER
     Dosage: 1000MG THREE TIMES PER DAY
     Route: 048
     Dates: start: 20061016, end: 20061018
  2. MECOBALAMIN [Concomitant]
     Route: 048
  3. MINOCYCLINE HCL [Concomitant]
     Route: 065
  4. KENTAN [Concomitant]
     Route: 048

REACTIONS (2)
  - DYSARTHRIA [None]
  - RENAL FAILURE [None]
